FAERS Safety Report 18280849 (Version 1)
Quarter: 2020Q3

REPORT INFORMATION
  Report Type: Spontaneous
  Country: US (occurrence: US)
  Receive Date: 20200918
  Receipt Date: 20200918
  Transmission Date: 20201103
  Serious: No
  Sender: FDA-Public Use
  Company Number: US-ALLERGAN-2033155US

PATIENT
  Age: 18 Year
  Sex: Male

DRUGS (1)
  1. SAPHRIS [Suspect]
     Active Substance: ASENAPINE MALEATE
     Indication: BIPOLAR DISORDER
     Dosage: UNK
     Route: 065

REACTIONS (15)
  - Abulia [Unknown]
  - Autophobia [Unknown]
  - Hostility [Unknown]
  - Irritability [Unknown]
  - Disturbance in attention [Unknown]
  - Anger [Unknown]
  - Euphoric mood [Unknown]
  - Depressed mood [Unknown]
  - Feeling guilty [Unknown]
  - Loss of personal independence in daily activities [Unknown]
  - Mental impairment [Unknown]
  - Patient uncooperative [Unknown]
  - Feelings of worthlessness [Unknown]
  - Self esteem decreased [Unknown]
  - Self esteem inflated [Unknown]
